FAERS Safety Report 6542582-X (Version None)
Quarter: 2010Q1

REPORT INFORMATION
  Report Type: 
  Country: None (occurrence: None)
  Receive Date: 20100119
  Receipt Date: 20100112
  Transmission Date: 20100710
  Serious: Yes (Hospitalization)
  Sender: FDA-Public Use
  Company Number: US-ASTRAZENECA-2010SE01305

PATIENT
  Age: 84 Year
  Sex: Male

DRUGS (2)
  1. SYMBICORT [Suspect]
     Indication: CHRONIC OBSTRUCTIVE PULMONARY DISEASE
     Route: 055
     Dates: end: 20090101
  2. SYMBICORT [Suspect]
     Route: 055
     Dates: start: 20100101

REACTIONS (3)
  - PULMONARY THROMBOSIS [None]
  - RESPIRATORY ARREST [None]
  - RESPIRATORY FAILURE [None]
